FAERS Safety Report 8521512 (Version 3)
Quarter: 2013Q1

REPORT INFORMATION
  Report Type: Report from Study
  Country: US (occurrence: US)
  Receive Date: 20120419
  Receipt Date: 20130104
  Transmission Date: 20140127
  Serious: Yes (Hospitalization)
  Sender: FDA-Public Use
  Company Number: US-PAR PHARMACEUTICAL, INC-2012SCPR004308

PATIENT
  Sex: 0

DRUGS (10)
  1. LUBIPROSTONE [Suspect]
     Indication: CONSTIPATION
     Dosage: 1 CAPSULE, TWICE A DAY; ONCE IN THE MORNING AND ONCE IN THE EVENING
     Route: 048
     Dates: start: 20120329, end: 20120402
  2. LUBIPROSTONE [Suspect]
     Dosage: UNK, UNKNOWN
     Route: 065
     Dates: start: 20120419
  3. REMERON [Concomitant]
     Indication: PRODUCT USED FOR UNKNOWN INDICATION
     Dosage: 15 MG A DAY
     Route: 048
  4. REMERON [Concomitant]
     Dosage: 30 MG, QD
     Route: 048
  5. SEROQUEL [Concomitant]
     Indication: PRODUCT USED FOR UNKNOWN INDICATION
     Dosage: 200 MG, BEDTIME
     Route: 048
  6. LISINOPRIL [Concomitant]
     Indication: HYPERTENSION
     Dosage: 40 MG, TWICE DAILY
     Route: 048
     Dates: start: 2010
  7. MIRTAZAPINE [Concomitant]
     Indication: BIPOLAR DISORDER
     Dosage: 30 MG, QD
     Route: 048
     Dates: start: 2009
  8. QUETIAPINE FUMARATE [Concomitant]
     Indication: BIPOLAR DISORDER
     Dosage: 200 MG, QD
     Route: 048
     Dates: start: 2007
  9. NICOTINE [Concomitant]
     Indication: SMOKING CESSATION THERAPY
     Dosage: 21 MG, QD
     Route: 062
     Dates: start: 20120303
  10. AMITRIPTYLINE [Concomitant]
     Indication: PRODUCT USED FOR UNKNOWN INDICATION
     Dosage: UNK, AT BEDTIME
     Route: 048

REACTIONS (9)
  - Gastrointestinal haemorrhage [Unknown]
  - Alcohol poisoning [Recovered/Resolved]
  - Sinus tachycardia [Unknown]
  - Mastoid effusion [Unknown]
  - Gastrooesophageal reflux disease [Unknown]
  - Fall [Recovering/Resolving]
  - Delirium tremens [Recovered/Resolved]
  - Blood pressure increased [Not Recovered/Not Resolved]
  - Haematemesis [Recovered/Resolved]
